FAERS Safety Report 20440340 (Version 1)
Quarter: 2022Q1

REPORT INFORMATION
  Report Type: Spontaneous
  Country: NL (occurrence: NL)
  Receive Date: 20220207
  Receipt Date: 20220207
  Transmission Date: 20220423
  Serious: Yes (Other)
  Sender: FDA-Public Use
  Company Number: NL-BAUSCH-BL-2022-003183

PATIENT
  Age: 66 Year

DRUGS (1)
  1. DEXAMETHASONE [Suspect]
     Active Substance: DEXAMETHASONE
     Indication: COVID-19
     Route: 065
     Dates: start: 2020

REACTIONS (1)
  - Lower gastrointestinal perforation [Recovered/Resolved]

NARRATIVE: CASE EVENT DATE: 20200101
